FAERS Safety Report 7413371-9 (Version None)
Quarter: 2011Q2

REPORT INFORMATION
  Report Type: 
  Country: None (occurrence: None)
  Receive Date: 20110413
  Receipt Date: 20110124
  Transmission Date: 20111010
  Serious: No
  Sender: FDA-Public Use
  Company Number: US-B.I. PHARMACEUTICALS,INC./RIDGEFIELD-2011-BP-02522BP

PATIENT
  Age: 59 Year
  Sex: Male

DRUGS (4)
  1. AMIODARONE [Concomitant]
     Dates: start: 20110101
  2. METOPROLOL TARTRATE [Concomitant]
     Indication: HEART RATE INCREASED
  3. PRADAXA [Suspect]
     Indication: ATRIAL FIBRILLATION
     Dosage: 300 MG
     Route: 048
     Dates: start: 20110115
  4. TIKOSYN [Concomitant]
     Dates: end: 20101215

REACTIONS (2)
  - THROAT IRRITATION [None]
  - OESOPHAGEAL PAIN [None]
